FAERS Safety Report 8488287-X (Version None)
Quarter: 2012Q3

REPORT INFORMATION
  Report Type: 
  Country: None (occurrence: None)
  Receive Date: 20120705
  Receipt Date: 20120625
  Transmission Date: 20120928
  Serious: Yes (Hospitalization, Other)
  Sender: FDA-Public Use
  Company Number: FR-JNJFOC-20120109398

PATIENT
  Age: 69 Year
  Sex: Male

DRUGS (2)
  1. REMICADE [Suspect]
     Dosage: 10 YEARS
     Route: 042
     Dates: start: 20111104
  2. REMICADE [Suspect]
     Indication: ANKYLOSING SPONDYLITIS
     Route: 042
     Dates: start: 20040101

REACTIONS (3)
  - INFECTION [None]
  - IRITIS [None]
  - PULMONARY SARCOIDOSIS [None]
